FAERS Safety Report 9419331 (Version 1)
Quarter: 2013Q3

REPORT INFORMATION
  Report Type: Spontaneous
  Country: BR (occurrence: BR)
  Receive Date: 20130723
  Receipt Date: 20130723
  Transmission Date: 20140515
  Serious: Yes (Other)
  Sender: FDA-Public Use
  Company Number: B0909795A

PATIENT
  Age: 46 Year
  Sex: Male

DRUGS (5)
  1. LAMIVUDINE [Suspect]
     Indication: HIV INFECTION
     Dates: start: 200710, end: 200905
  2. TENOFOVIR [Suspect]
     Indication: HIV INFECTION
     Dates: start: 200710, end: 200905
  3. EFAVIRENZ [Suspect]
     Indication: HIV INFECTION
     Dates: start: 200710, end: 200905
  4. COMBIVIR [Suspect]
     Indication: HIV INFECTION
     Dates: start: 200905
  5. LOPINAVIR + RITONAVIR [Suspect]
     Indication: HIV INFECTION
     Dates: start: 200905

REACTIONS (8)
  - Treatment failure [None]
  - Blister [None]
  - Scar [None]
  - Photosensitivity reaction [None]
  - Hypertrichosis [None]
  - Milia [None]
  - Tanning [None]
  - Porphyria non-acute [None]
